FAERS Safety Report 21014192 (Version 1)
Quarter: 2022Q2

REPORT INFORMATION
  Report Type: Spontaneous
  Country: US (occurrence: US)
  Receive Date: 20220627
  Receipt Date: 20220627
  Transmission Date: 20220720
  Serious: Yes (Other)
  Sender: FDA-Public Use
  Company Number: US-MALLINCKRODT-T202203143

PATIENT
  Sex: Female

DRUGS (2)
  1. H.P. ACTHAR [Suspect]
     Active Substance: CORTICOTROPIN
     Indication: Polymyositis
     Dosage: 0.5 MILLILITER, TWICE A WEEK FOR 2 WEEKS
     Route: 058
     Dates: start: 202205, end: 2022
  2. H.P. ACTHAR [Suspect]
     Active Substance: CORTICOTROPIN
     Indication: Dermatomyositis
     Dosage: 80 UNITS, TWO TIMES A WEEK
     Route: 058
     Dates: start: 2022

REACTIONS (2)
  - Dysphagia [Unknown]
  - Device connection issue [Unknown]
